FAERS Safety Report 4668435-X (Version None)
Quarter: 2005Q2

REPORT INFORMATION
  Report Type: 
  Country: None (occurrence: None)
  Receive Date: 20050518
  Receipt Date: 20050426
  Transmission Date: 20051028
  Serious: Yes (Hospitalization)
  Sender: FDA-Public Use
  Company Number: B0378405A

PATIENT
  Sex: Female

DRUGS (2)
  1. ZANTAC [Suspect]
     Indication: ILL-DEFINED DISORDER
     Dosage: 10 ML/ TWICE PER DAY / ORAL
     Route: 048
     Dates: start: 20050315, end: 20050413
  2. DOMPERIDONE [Concomitant]

REACTIONS (5)
  - ADVERSE EVENT [None]
  - LIVER FUNCTION TEST ABNORMAL [None]
  - NEONATAL DISORDER [None]
  - NONSPECIFIC REACTION [None]
  - PRESCRIBED OVERDOSE [None]
